FAERS Safety Report 19449695 (Version 1)
Quarter: 2021Q2

REPORT INFORMATION
  Report Type: Spontaneous
  Country: GB (occurrence: GB)
  Receive Date: 20210622
  Receipt Date: 20210622
  Transmission Date: 20210717
  Serious: No
  Sender: FDA-Public Use
  Company Number: GB-GW PHARMA-202106GBGW02947

PATIENT

DRUGS (6)
  1. SODIUM VALPROATE [Suspect]
     Active Substance: VALPROATE SODIUM
     Dosage: UNK (DOSE REDUCED)
     Route: 065
     Dates: start: 2020
  2. CLOBAZAM. [Concomitant]
     Active Substance: CLOBAZAM
     Indication: PRODUCT USED FOR UNKNOWN INDICATION
     Dosage: 2 MILLIGRAM, BID
     Route: 065
  3. EPIDYOLEX [Suspect]
     Active Substance: CANNABIDIOL
     Dosage: UNK (REDUCED DOSE)
     Route: 048
     Dates: start: 2020
  4. EPIDYOLEX [Suspect]
     Active Substance: CANNABIDIOL
     Indication: LENNOX-GASTAUT SYNDROME
     Dosage: 9.68 MG/KG/DAY, 150 MILLIGRAM, BID
     Route: 048
     Dates: start: 20200521, end: 2020
  5. SODIUM VALPROATE [Suspect]
     Active Substance: VALPROATE SODIUM
     Indication: PRODUCT USED FOR UNKNOWN INDICATION
     Dosage: 300 MILLIGRAM, BID
     Route: 065
  6. LAMOTRIGINE. [Concomitant]
     Active Substance: LAMOTRIGINE
     Indication: PRODUCT USED FOR UNKNOWN INDICATION
     Dosage: 25 MILLIGRAM, BID
     Route: 065

REACTIONS (1)
  - Platelet count decreased [Recovered/Resolved]

NARRATIVE: CASE EVENT DATE: 20200617
